FAERS Safety Report 6705663-3 (Version None)
Quarter: 2010Q2

REPORT INFORMATION
  Report Type: 
  Country: None (occurrence: None)
  Receive Date: 20100503
  Receipt Date: 20100420
  Transmission Date: 20101027
  Serious: Yes (Other)
  Sender: FDA-Public Use
  Company Number: US-JNJFOC-20100406909

PATIENT
  Age: 57 Year
  Sex: Female
  Weight: 34.47 kg

DRUGS (3)
  1. FENTANYL [Suspect]
     Indication: DRUG USE FOR UNKNOWN INDICATION
     Route: 062
  2. MORPHINE [Suspect]
     Indication: DRUG USE FOR UNKNOWN INDICATION
     Route: 065
  3. PAROXETINE HCL [Suspect]
     Indication: DRUG USE FOR UNKNOWN INDICATION
     Route: 065

REACTIONS (4)
  - DRUG TOXICITY [None]
  - DYSARTHRIA [None]
  - INCORRECT ROUTE OF DRUG ADMINISTRATION [None]
  - WRONG TECHNIQUE IN DRUG USAGE PROCESS [None]
